FAERS Safety Report 5337453-0 (Version None)
Quarter: 2007Q2

REPORT INFORMATION
  Report Type: 
  Country: None (occurrence: None)
  Receive Date: 20070529
  Receipt Date: 20070518
  Transmission Date: 20071010
  Serious: Yes (Other)
  Sender: FDA-Public Use
  Company Number: US-BOEHRINGER INGELHEIM PHARMACEUTICALS, INC.-2007-BP-07128YA

PATIENT
  Sex: Male

DRUGS (1)
  1. TAMSULOSIN HCL [Suspect]
     Route: 048

REACTIONS (1)
  - MACULAR OEDEMA [None]
